FAERS Safety Report 23614223 (Version 1)
Quarter: 2024Q1

REPORT INFORMATION
  Report Type: Spontaneous
  Country: IL (occurrence: IL)
  Receive Date: 20240310
  Receipt Date: 20240310
  Transmission Date: 20240410
  Serious: Yes (Other)
  Sender: FDA-Public Use
  Company Number: IL-ABBVIE-5670830

PATIENT
  Sex: Female

DRUGS (1)
  1. URSODIOL [Suspect]
     Active Substance: URSODIOL
     Indication: Cholestasis of pregnancy
     Route: 065

REACTIONS (3)
  - Stillbirth [Unknown]
  - Maternal exposure during pregnancy [Unknown]
  - Off label use [Unknown]
